FAERS Safety Report 14222198 (Version 8)
Quarter: 2018Q4

REPORT INFORMATION
  Report Type: Report from Study
  Country: None (occurrence: US)
  Receive Date: 20171124
  Receipt Date: 20181120
  Transmission Date: 20190204
  Serious: Yes (Other)
  Sender: FDA-Public Use
  Company Number: US-ABBVIE-16K-163-1738805-00

PATIENT
  Sex: Male

DRUGS (5)
  1. HUMIRA [Suspect]
     Active Substance: ADALIMUMAB
     Indication: RHEUMATOID ARTHRITIS
     Route: 058
     Dates: start: 20160308
  2. VITAMIN B12 [Suspect]
     Active Substance: CYANOCOBALAMIN
     Indication: PRODUCT USED FOR UNKNOWN INDICATION
     Dosage: *3 MOS
     Route: 065
  3. PREDNISONE. [Concomitant]
     Active Substance: PREDNISONE
     Indication: PRODUCT USED FOR UNKNOWN INDICATION
  4. METHOTREXATE. [Concomitant]
     Active Substance: METHOTREXATE
     Indication: PRODUCT USED FOR UNKNOWN INDICATION
  5. GABAPENTIN. [Concomitant]
     Active Substance: GABAPENTIN
     Indication: PRODUCT USED FOR UNKNOWN INDICATION

REACTIONS (30)
  - Fall [Unknown]
  - Hyperkeratosis [Unknown]
  - Neuropathy peripheral [Unknown]
  - Back pain [Unknown]
  - Tension headache [Not Recovered/Not Resolved]
  - Paraesthesia [Unknown]
  - Musculoskeletal stiffness [Unknown]
  - Foot deformity [Unknown]
  - Mobility decreased [Unknown]
  - Pain [Not Recovered/Not Resolved]
  - Rheumatoid arthritis [Unknown]
  - Neck pain [Not Recovered/Not Resolved]
  - Fatigue [Not Recovered/Not Resolved]
  - Cardiac valve disease [Unknown]
  - Chest pain [Unknown]
  - Amnesia [Not Recovered/Not Resolved]
  - Dental restoration failure [Unknown]
  - Burning sensation [Unknown]
  - Nodule [Recovered/Resolved]
  - Head injury [Unknown]
  - Rheumatoid nodule [Not Recovered/Not Resolved]
  - Hand deformity [Unknown]
  - Gait disturbance [Unknown]
  - Musculoskeletal pain [Unknown]
  - Post procedural complication [Unknown]
  - Road traffic accident [Unknown]
  - Sensitivity of teeth [Unknown]
  - Skin mass [Recovered/Resolved]
  - Memory impairment [Unknown]
  - Joint lock [Not Recovered/Not Resolved]

NARRATIVE: CASE EVENT DATE: 2016
